FAERS Safety Report 6956637-9 (Version None)
Quarter: 2010Q3

REPORT INFORMATION
  Report Type: 
  Country: None (occurrence: None)
  Receive Date: 20100830
  Receipt Date: 20100823
  Transmission Date: 20110219
  Serious: Yes (Other)
  Sender: FDA-Public Use
  Company Number: US-PFIZER INC-2010036886

PATIENT
  Sex: Male
  Weight: 73.016 kg

DRUGS (6)
  1. NEURONTIN [Suspect]
     Dosage: 100 MG, 5 TIMES A DAY
  2. NEURONTIN [Suspect]
     Dosage: 100 MG, 5X/DAY
     Route: 048
  3. DILANTIN [Suspect]
     Indication: GRAND MAL CONVULSION
     Dosage: 100MG 5X/DAY
     Route: 048
  4. DILANTIN [Suspect]
     Dosage: 30MG EVERY OTHER DAY
  5. LIPITOR [Concomitant]
     Indication: BLOOD CHOLESTEROL INCREASED
     Dosage: UNK
  6. AVAPRO [Concomitant]
     Indication: HYPERTENSION
     Dosage: UNK

REACTIONS (5)
  - CONVULSION [None]
  - DRUG INEFFECTIVE [None]
  - LABORATORY TEST ABNORMAL [None]
  - POLLAKIURIA [None]
  - URINARY RETENTION [None]
